FAERS Safety Report 10080542 (Version 2)
Quarter: 2014Q2

REPORT INFORMATION
  Report Type: Report from Study
  Country: JP (occurrence: JP)
  Receive Date: 20140416
  Receipt Date: 20140521
  Transmission Date: 20141212
  Serious: Yes (Hospitalization)
  Sender: FDA-Public Use
  Company Number: JP-ROCHE-1383253

PATIENT
  Age: 45 Year
  Sex: Female
  Weight: 55.1 kg

DRUGS (11)
  1. TRASTUZUMAB EMTANSINE [Suspect]
     Indication: BREAST CANCER METASTATIC
     Route: 041
     Dates: start: 20140331, end: 20140509
  2. BETAHISTINE MESILATE [Concomitant]
     Indication: DIZZINESS
     Route: 048
     Dates: start: 2013
  3. KALLIDINOGENASE [Concomitant]
     Indication: DIZZINESS
     Dosage: REPORTED AS : SAYMOTIN S
     Route: 048
     Dates: start: 2013
  4. LANSOPRAZOLE [Concomitant]
     Indication: GASTRITIS PROPHYLAXIS
     Route: 048
     Dates: start: 2013
  5. EBASTINE [Concomitant]
     Indication: RHINITIS ALLERGIC
     Route: 048
     Dates: start: 20140326
  6. URSO [Concomitant]
     Indication: HEPATIC FUNCTION ABNORMAL
     Route: 048
     Dates: start: 20120813
  7. MILTAX [Concomitant]
     Indication: MUSCULOSKELETAL STIFFNESS
     Route: 061
     Dates: start: 20120813
  8. METHYCOBAL [Concomitant]
     Indication: NEUROPATHY PERIPHERAL
     Route: 048
     Dates: start: 20130930
  9. SULFADIAZINE [Concomitant]
     Indication: SKIN ULCER
     Dosage: TWICE ON THE PROPER QUANTITY THE FIRST?REPORTED AS : THERADIA
     Route: 061
     Dates: start: 20140303
  10. CODEINE PHOSPHATE [Concomitant]
     Indication: COUGH
     Dosage: SINGLE USE
     Route: 048
     Dates: start: 20140317
  11. RANMARK [Concomitant]
     Indication: BREAST CANCER METASTATIC
     Route: 058
     Dates: start: 20121015

REACTIONS (1)
  - Pyrexia [Recovered/Resolved]
